FAERS Safety Report 13094145 (Version 1)
Quarter: 2017Q1

REPORT INFORMATION
  Report Type: Spontaneous
  Country: US (occurrence: US)
  Receive Date: 20170106
  Receipt Date: 20170106
  Transmission Date: 20170428
  Serious: Yes (Death, Hospitalization)
  Sender: FDA-Public Use
  Company Number: US-BAYER-2017-001676

PATIENT
  Age: 55 Year
  Sex: Male

DRUGS (10)
  1. METFORMIN [Suspect]
     Active Substance: METFORMIN HYDROCHLORIDE
  2. ACETYLSALICYLIC ACID (} 100 MG) [Suspect]
     Active Substance: ASPIRIN
  3. PREGABALIN. [Suspect]
     Active Substance: PREGABALIN
  4. ATENOLOL. [Suspect]
     Active Substance: ATENOLOL
  5. ACETAMINOPHEN W/HYDROCODONE [Suspect]
     Active Substance: ACETAMINOPHEN\HYDROCODONE
  6. MELOXICAM. [Suspect]
     Active Substance: MELOXICAM
  7. LISINOPRIL. [Suspect]
     Active Substance: LISINOPRIL
  8. SIMVASTATIN. [Suspect]
     Active Substance: SIMVASTATIN
  9. ESOMEPRAZOLE [Suspect]
     Active Substance: ESOMEPRAZOLE
  10. GABAPENTIN. [Suspect]
     Active Substance: GABAPENTIN

REACTIONS (1)
  - Toxicity to various agents [Fatal]
